FAERS Safety Report 8256171-2 (Version None)
Quarter: 2012Q2

REPORT INFORMATION
  Report Type: 
  Country: None (occurrence: None)
  Receive Date: 20120403
  Receipt Date: 20120328
  Transmission Date: 20120825
  Serious: Yes (Other)
  Sender: FDA-Public Use
  Company Number: US-PFIZER INC-2012080136

PATIENT
  Sex: Female
  Weight: 63.5 kg

DRUGS (2)
  1. LYRICA [Suspect]
     Indication: BACK PAIN
  2. LYRICA [Suspect]
     Indication: INTERVERTEBRAL DISC PROTRUSION
     Dosage: UNK, 2X/DAY
     Route: 048
     Dates: start: 20080101, end: 20080901

REACTIONS (5)
  - TOOTH DISORDER [None]
  - TOOTH EROSION [None]
  - DENTAL CARIES [None]
  - ORAL INFECTION [None]
  - STOMATITIS [None]
